FAERS Safety Report 8937038 (Version 2)
Quarter: 2012Q4

REPORT INFORMATION
  Report Type: 
  Country: NL (occurrence: NL)
  Receive Date: 20121130
  Receipt Date: 20121206
  Transmission Date: 20130627
  Serious: Yes (Life-Threatening, Hospitalization)
  Sender: FDA-Public Use
  Company Number: NL-AMGEN-NLDSP2012076650

PATIENT
  Age: 66 Year
  Sex: Female

DRUGS (8)
  1. ENBREL [Suspect]
     Indication: RHEUMATOID ARTHRITIS
     Dosage: 50 mg, weekly
     Route: 058
     Dates: start: 200902
  2. INDOMETHACIN                       /00003801/ [Suspect]
     Indication: RHEUMATOID ARTHRITIS
     Dosage: 75 mg, 1x/day
     Route: 048
  3. MTX                                /00113801/ [Concomitant]
     Indication: RHEUMATOID ARTHRITIS
     Dosage: 25 mg, weekly
     Route: 048
  4. PLAQUENIL                          /00072602/ [Concomitant]
     Indication: RHEUMATOID ARTHRITIS
     Dosage: 200 mg, 1x/day
     Route: 048
  5. OMEPRAZOL                          /00661201/ [Concomitant]
     Dosage: 20 mg, 1x/day
     Route: 048
  6. PREDNISOLON                        /00016201/ [Concomitant]
     Dosage: UNK
  7. FOLIC ACID [Concomitant]
     Dosage: UNK
  8. CALCIUM WITH VITAMIN D             /00944201/ [Concomitant]
     Dosage: UNK

REACTIONS (1)
  - Intestinal haemorrhage [Recovered/Resolved]
